FAERS Safety Report 8081238-1 (Version None)
Quarter: 2012Q1

REPORT INFORMATION
  Report Type: 
  Country: None (occurrence: None)
  Receive Date: 20120130
  Receipt Date: 20120116
  Transmission Date: 20120608
  Serious: Yes (Other)
  Sender: FDA-Public Use
  Company Number: GB-UCBSA-044538

PATIENT
  Sex: Male
  Weight: 107 kg

DRUGS (10)
  1. NITROGLYCERIN [Concomitant]
  2. CHLORPHENIRAMINE MALEATE [Concomitant]
  3. WATER RETENTION MEDICATION [Concomitant]
  4. XYZAL [Suspect]
     Indication: URTICARIA
     Dosage: 1 IN THE MORNING,1 AT NIGHT
  5. XYZAL [Suspect]
     Dosage: 2 IN THE MORNING,2 AT NIGHT
  6. LOSARTAN POTASSIUM [Concomitant]
  7. ATENOLOL [Concomitant]
  8. EPIPEN [Concomitant]
  9. ASPIRIN [Concomitant]
  10. CORTISOL [Concomitant]
     Route: 042

REACTIONS (4)
  - DRUG HYPERSENSITIVITY [None]
  - ANGIOEDEMA [None]
  - IDIOPATHIC URTICARIA [None]
  - CONDITION AGGRAVATED [None]
